FAERS Safety Report 9522374 (Version 2)
Quarter: 2013Q3

REPORT INFORMATION
  Report Type: Spontaneous
  Country: BE (occurrence: BE)
  Receive Date: 20130913
  Receipt Date: 20130923
  Transmission Date: 20140515
  Serious: Yes (Hospitalization, Other)
  Sender: FDA-Public Use
  Company Number: BE-MERCK-1309BEL004425

PATIENT
  Age: 52 Year
  Sex: Male

DRUGS (13)
  1. SYCREST [Suspect]
     Indication: BIPOLAR I DISORDER
     Dosage: 10 MG, ONCE
     Route: 060
     Dates: start: 20130529, end: 20130529
  2. SYCREST [Suspect]
     Indication: MANIA
     Dosage: 10 MG, BID
     Route: 048
     Dates: start: 20130530, end: 20130607
  3. SEROQUEL [Concomitant]
     Indication: BIPOLAR DISORDER
     Dosage: 200 MG, 2 PER DAY
  4. SEROQUEL [Concomitant]
     Dosage: 200 MG, TID
  5. SERLAIN [Concomitant]
     Indication: BIPOLAR DISORDER
     Dosage: 50 MG, 1 PER DAY
     Route: 048
     Dates: start: 20130601, end: 20130710
  6. ABILIFY [Concomitant]
     Indication: BIPOLAR DISORDER
     Dosage: 15 MG, UNK
     Route: 048
     Dates: start: 20130607
  7. ABILIFY [Concomitant]
     Dosage: UNK
     Dates: end: 201305
  8. ABILIFY [Concomitant]
     Dosage: 10 MG, QD
     Dates: start: 2013
  9. XAGRID [Concomitant]
     Indication: THROMBOCYTOSIS
     Dosage: 0.5 MG, AS REQUIRED
  10. ALPRAZOLAM [Concomitant]
     Dosage: 0.25 MG, TID
  11. L-THYROXIN [Concomitant]
     Indication: AUTOIMMUNE THYROIDITIS
     Dosage: 100 MICROGRAM, 2 PER DAY
  12. ASAFLOW [Concomitant]
     Dosage: 80 MG, 1 PER DAY
  13. EMCONCOR [Concomitant]
     Dosage: 5 MG, 1 PER DAY

REACTIONS (6)
  - Serotonin syndrome [Recovered/Resolved with Sequelae]
  - Neuroleptic malignant syndrome [Recovered/Resolved with Sequelae]
  - Urinary retention [Recovered/Resolved with Sequelae]
  - Renal impairment [Recovered/Resolved with Sequelae]
  - Myoclonus [Recovered/Resolved with Sequelae]
  - Tremor [Recovered/Resolved with Sequelae]
